FAERS Safety Report 6673749-8 (Version None)
Quarter: 2010Q2

REPORT INFORMATION
  Report Type: 
  Country: None (occurrence: None)
  Receive Date: 20100407
  Receipt Date: 20100326
  Transmission Date: 20101027
  Serious: Yes (Other)
  Sender: FDA-Public Use
  Company Number: US-1181367

PATIENT
  Age: 57 Year
  Sex: Male
  Weight: 81.6475 kg

DRUGS (2)
  1. CIPRODEX [Suspect]
     Indication: CONJUNCTIVITIS
     Dosage: (ONE GTT Q TWO HOURS AURICULAR (OTIC))
     Route: 001
     Dates: start: 20090111, end: 20090112
  2. CIPRODEX [Suspect]
     Indication: PSEUDOMONAS INFECTION
     Dosage: (ONE GTT Q TWO HOURS AURICULAR (OTIC))
     Route: 001
     Dates: start: 20090111, end: 20090112

REACTIONS (3)
  - DRUG PRESCRIBING ERROR [None]
  - ULCERATIVE KERATITIS [None]
  - WRONG DRUG ADMINISTERED [None]
